FAERS Safety Report 9498506 (Version 2)
Quarter: 2013Q4

REPORT INFORMATION
  Report Type: Spontaneous
  Country: US (occurrence: US)
  Receive Date: 20130904
  Receipt Date: 20131105
  Transmission Date: 20140711
  Serious: Yes (Hospitalization)
  Sender: FDA-Public Use
  Company Number: US-GLAXOSMITHKLINE-A1040127A

PATIENT
  Age: 72 Year
  Sex: Male

DRUGS (1)
  1. ADVAIR [Suspect]
     Indication: DYSPNOEA
     Dates: start: 20130709

REACTIONS (2)
  - Investigation [Unknown]
  - Rehabilitation therapy [Not Recovered/Not Resolved]
